FAERS Safety Report 13267885 (Version 2)
Quarter: 2020Q3

REPORT INFORMATION
  Report Type: Report from Study
  Country: US (occurrence: US)
  Receive Date: 20170224
  Receipt Date: 20200810
  Transmission Date: 20201102
  Serious: No
  Sender: FDA-Public Use
  Company Number: US-AMGEN-USASL2017028017

PATIENT
  Age: 70 Year
  Sex: Male

DRUGS (4)
  1. REPATHA [Suspect]
     Active Substance: EVOLOCUMAB
     Indication: PRODUCT USED FOR UNKNOWN INDICATION
     Dosage: UNK
     Route: 065
  2. HUMIRA [Concomitant]
     Active Substance: ADALIMUMAB
     Indication: PSORIATIC ARTHROPATHY
     Dosage: UNK
  3. ENBREL [Suspect]
     Active Substance: ETANERCEPT
     Indication: PSORIATIC ARTHROPATHY
     Dosage: UNK
     Route: 065
  4. COSENTYX [Concomitant]
     Active Substance: SECUKINUMAB
     Indication: PSORIATIC ARTHROPATHY
     Dosage: UNK

REACTIONS (7)
  - Fatigue [Recovering/Resolving]
  - Adverse drug reaction [Unknown]
  - Asthenia [Unknown]
  - Device malfunction [Unknown]
  - Memory impairment [Recovering/Resolving]
  - Injection site pain [Unknown]
  - Product storage error [Unknown]

NARRATIVE: CASE EVENT DATE: 20200801
